FAERS Safety Report 6358928-1 (Version None)
Quarter: 2009Q3

REPORT INFORMATION
  Report Type: 
  Country: None (occurrence: None)
  Receive Date: 20090914
  Receipt Date: 20090903
  Transmission Date: 20100115
  Serious: Yes (Hospitalization)
  Sender: FDA-Public Use
  Company Number: CHPA2009US18286

PATIENT
  Sex: Female

DRUGS (1)
  1. BENEFIBER W/WHEAT DEXTRIN (NCH) (WHEAT DEXTRIN) POWDER [Suspect]
     Dosage: ORAL
     Route: 048
     Dates: end: 20090902

REACTIONS (2)
  - ABDOMINAL DISCOMFORT [None]
  - HYPERSENSITIVITY [None]
